FAERS Safety Report 19231715 (Version 1)
Quarter: 2021Q2

REPORT INFORMATION
  Report Type: Spontaneous
  Country: CA (occurrence: CA)
  Receive Date: 20210507
  Receipt Date: 20210507
  Transmission Date: 20210717
  Serious: Yes (Other)
  Sender: FDA-Public Use
  Company Number: CA-3M-2021-CA-000587

PATIENT
  Age: 54 Year
  Sex: Male
  Weight: 75 kg

DRUGS (3)
  1. PERIDEX [Suspect]
     Active Substance: CHLORHEXIDINE GLUCONATE
     Indication: TOOTH EXTRACTION
     Dosage: 15 ML TWICE DAILY
  2. UNSPECIFIED ANALGESICS [Concomitant]
     Active Substance: UNSPECIFIED INGREDIENT
  3. UNSPECIFIED ANTI?INFECTIVES [Concomitant]

REACTIONS (3)
  - Burning mouth syndrome [Unknown]
  - Tongue discolouration [Unknown]
  - Trichoglossia [Recovered/Resolved]
